FAERS Safety Report 11944774 (Version 1)
Quarter: 2016Q1

REPORT INFORMATION
  Report Type: Spontaneous
  Country: IT (occurrence: IT)
  Receive Date: 20160125
  Receipt Date: 20160125
  Transmission Date: 20160526
  Serious: Yes (Hospitalization)
  Sender: FDA-Public Use
  Company Number: IT-DRREDDYS-GER/ITL/13/0033901

PATIENT
  Age: 53 Year
  Sex: Female

DRUGS (4)
  1. PANTOPRAZOLE [Interacting]
     Active Substance: PANTOPRAZOLE SODIUM
     Indication: ACUTE CORONARY SYNDROME
     Dates: start: 2012, end: 2012
  2. CLOPIDOGREL [Interacting]
     Active Substance: CLOPIDOGREL BISULFATE
     Indication: ANTIPLATELET THERAPY
     Dates: start: 2012, end: 2012
  3. ATORVASTATIN [Suspect]
     Active Substance: ATORVASTATIN
     Indication: ACUTE CORONARY SYNDROME
     Dates: start: 2012, end: 2012
  4. ACETYLSALICYLIC ACID [Interacting]
     Active Substance: ASPIRIN
     Indication: ACUTE CORONARY SYNDROME
     Dates: start: 2012, end: 2012

REACTIONS (7)
  - Urine abnormality [Unknown]
  - Hepatitis acute [Recovering/Resolving]
  - Asthenia [Unknown]
  - Arthralgia [Unknown]
  - Rash papular [Unknown]
  - Drug interaction [Unknown]
  - Treatment noncompliance [Unknown]

NARRATIVE: CASE EVENT DATE: 2012
